FAERS Safety Report 26062059 (Version 1)
Quarter: 2025Q4

REPORT INFORMATION
  Report Type: Spontaneous
  Country: CA (occurrence: CA)
  Receive Date: 20251119
  Receipt Date: 20251119
  Transmission Date: 20260118
  Serious: Yes (Other)
  Sender: JOHNSON AND JOHNSON
  Company Number: CA-JNJFOC-20251158600

PATIENT
  Age: 44 Year
  Sex: Male

DRUGS (1)
  1. INFLIXIMAB [Suspect]
     Active Substance: INFLIXIMAB
     Indication: Crohn^s disease
     Route: 041

REACTIONS (6)
  - Pulmonary embolism [Unknown]
  - Back pain [Unknown]
  - Chest pain [Unknown]
  - Dyspnoea [Unknown]
  - Pyrexia [Unknown]
  - Off label use [Unknown]
